FAERS Safety Report 12876593 (Version 1)
Quarter: 2016Q4

REPORT INFORMATION
  Report Type: Spontaneous
  Country: FI (occurrence: FI)
  Receive Date: 20161024
  Receipt Date: 20161024
  Transmission Date: 20170207
  Serious: Yes (Hospitalization)
  Sender: FDA-Public Use
  Company Number: FI-PFIZER INC-2016481557

PATIENT
  Age: 62 Year
  Sex: Female

DRUGS (4)
  1. ZYRTEC [Concomitant]
     Active Substance: CETIRIZINE HYDROCHLORIDE
     Dosage: 10 MG, ONE HOUR PRIOR OXALIPLATIN TREATMENT
     Route: 048
  2. ORADEXON /00016001/ [Concomitant]
     Dosage: 10 MG, ONE HOUR PRIOR OXALIPLATIN TREATMENT
     Route: 042
  3. OXALIPLATIN HOSPIRA [Suspect]
     Active Substance: OXALIPLATIN
     Indication: COLON CANCER
     Dosage: 200 MG, UNK
     Route: 042
     Dates: start: 20161004, end: 20161004
  4. PANADOL /00020001/ [Concomitant]
     Dosage: 1 G, ONE HOUR PRIOR OXALIPLATIN TREATMENT
     Route: 048

REACTIONS (2)
  - Throat tightness [Unknown]
  - Dyspnoea [Unknown]

NARRATIVE: CASE EVENT DATE: 20161004
